FAERS Safety Report 8532471-3 (Version None)
Quarter: 2012Q3

REPORT INFORMATION
  Report Type: 
  Country: None (occurrence: None)
  Receive Date: 20120716
  Receipt Date: 20120716
  Transmission Date: 20120928
  Serious: Yes (Other)
  Sender: FDA-Public Use
  Company Number: None

PATIENT
  Age: 33 Year
  Sex: Female
  Weight: 65.7716 kg

DRUGS (1)
  1. MIRENA [Suspect]

REACTIONS (4)
  - OVARIAN CYST RUPTURED [None]
  - DIZZINESS [None]
  - PAIN [None]
  - DYSSTASIA [None]
